FAERS Safety Report 7010999-5 (Version None)
Quarter: 2010Q3

REPORT INFORMATION
  Report Type: 
  Country: None (occurrence: None)
  Receive Date: 20100923
  Receipt Date: 20081204
  Transmission Date: 20110219
  Serious: Yes (Other)
  Sender: FDA-Public Use
  Company Number: US-WYE-H06170708

PATIENT
  Sex: Male
  Weight: 78.09 kg

DRUGS (5)
  1. EFFEXOR XR [Suspect]
     Indication: DEPRESSION
     Route: 048
     Dates: start: 20060101, end: 20070101
  2. EFFEXOR XR [Suspect]
     Route: 048
     Dates: start: 20070101, end: 20081101
  3. EFFEXOR XR [Suspect]
     Route: 048
     Dates: start: 20081101
  4. PROTONIX [Concomitant]
     Dosage: 40 MG, FREQUENCY UNKNOWN
     Dates: start: 19980101
  5. HYZAAR [Suspect]
     Indication: HYPERTENSION
     Dosage: UNKNOWN
     Dates: end: 20080101

REACTIONS (8)
  - ANGER [None]
  - ANXIETY [None]
  - BLOOD CHOLESTEROL INCREASED [None]
  - CONDITION AGGRAVATED [None]
  - COUGH [None]
  - DRUG WITHDRAWAL SYNDROME [None]
  - HYPERHIDROSIS [None]
  - HYPERTENSION [None]
